FAERS Safety Report 8134885-2 (Version None)
Quarter: 2012Q1

REPORT INFORMATION
  Report Type: 
  Country: None (occurrence: None)
  Receive Date: 20120210
  Receipt Date: 20120131
  Transmission Date: 20120608
  Serious: Yes (Other)
  Sender: FDA-Public Use
  Company Number: CC12-0140

PATIENT
  Age: 63 Year
  Sex: Male
  Weight: 86.1834 kg

DRUGS (3)
  1. GLUCOSAMINE SULFATE WITH METHYLSULFONYMETHANE [Concomitant]
  2. IMIQUIMOD [Suspect]
     Indication: SKIN LESION
     Dosage: 1 PACKET ONCE
     Dates: start: 20120110, end: 20120110
  3. ASCORBIC ACID [Concomitant]

REACTIONS (9)
  - MENTAL DISORDER [None]
  - HYPERHIDROSIS [None]
  - DIZZINESS [None]
  - MALAISE [None]
  - FEELING ABNORMAL [None]
  - VISUAL IMPAIRMENT [None]
  - PURULENCE [None]
  - HAEMORRHAGE [None]
  - ALTERED STATE OF CONSCIOUSNESS [None]
